FAERS Safety Report 6456913-2 (Version None)
Quarter: 2009Q4

REPORT INFORMATION
  Report Type: 
  Country: None (occurrence: None)
  Receive Date: 20091120
  Receipt Date: 20091105
  Transmission Date: 20100525
  Serious: Yes (Hospitalization)
  Sender: FDA-Public Use
  Company Number: AUR-APL-2009-01257

PATIENT
  Age: 68 Year
  Sex: Female
  Weight: 71.65 kg

DRUGS (15)
  1. HYDROCHLOROTHIAZIDE [Suspect]
     Dosage: 6.25MG, DAILY, ORAL
     Route: 048
     Dates: start: 20090827, end: 20091029
  2. INVESTIGATIONAL DRUG [Suspect]
     Indication: DEMENTIA ALZHEIMER'S TYPE
  3. SIMVASTATIN [Concomitant]
  4. LEVOTHYROXINE SODIUM [Concomitant]
  5. FOSAMAX [Concomitant]
  6. SPIRIVA [Concomitant]
  7. LORAZEPAM [Concomitant]
  8. FLUTICASONE [Concomitant]
  9. CITALOPRAM HYDROBROMIDE [Concomitant]
  10. ARICEPT [Concomitant]
  11. FOLIC ACID [Concomitant]
  12. BENADRYL [Concomitant]
  13. ACETAMINOPHEN [Concomitant]
  14. CALCIUM WITH VITAMIN D [Concomitant]
  15. VITAMIN B COMPLEX CAP [Concomitant]

REACTIONS (2)
  - DEHYDRATION [None]
  - PRESYNCOPE [None]
